FAERS Safety Report 5749241-1 (Version None)
Quarter: 2008Q2

REPORT INFORMATION
  Report Type: 
  Country: None (occurrence: None)
  Receive Date: 20080527
  Receipt Date: 20080516
  Transmission Date: 20081010
  Serious: Yes (Hospitalization, Other)
  Sender: FDA-Public Use
  Company Number: US-JNJFOC-20080107502

PATIENT
  Sex: Female
  Weight: 71.85 kg

DRUGS (2)
  1. REMICADE [Suspect]
     Route: 042
  2. REMICADE [Suspect]
     Indication: RHEUMATOID ARTHRITIS
     Route: 042

REACTIONS (5)
  - DEEP VEIN THROMBOSIS [None]
  - GASTRITIS [None]
  - OESOPHAGITIS [None]
  - PULMONARY EMBOLISM [None]
  - ULCER HAEMORRHAGE [None]
